FAERS Safety Report 7955475-8 (Version None)
Quarter: 2011Q4

REPORT INFORMATION
  Report Type: 
  Country: None (occurrence: None)
  Receive Date: 20111202
  Receipt Date: 20111122
  Transmission Date: 20120403
  Serious: Yes (Hospitalization)
  Sender: FDA-Public Use
  Company Number: CN-ROCHE-1015725

PATIENT
  Age: 61 Year
  Sex: Female
  Weight: 51 kg

DRUGS (8)
  1. COENZYME COMPLEX (UNK INGREDIENTS) [Concomitant]
     Dosage: DOSE: 200/U
     Dates: start: 20111115, end: 20111116
  2. CARBOPLATIN [Suspect]
     Indication: BREAST CANCER
     Route: 042
     Dates: start: 20111115, end: 20111121
  3. HERCEPTIN [Suspect]
     Indication: BREAST CANCER
     Route: 042
     Dates: start: 20111115, end: 20111121
  4. DEXAMETHASONE [Concomitant]
     Dates: start: 20111115, end: 20111116
  5. CIMETIDINE [Concomitant]
     Dates: start: 20111115, end: 20111116
  6. MAGNESIUM ISOGLYCYRRHIZINATE [Concomitant]
     Dates: start: 20111115
  7. TROPISETRON [Concomitant]
     Dates: start: 20111115, end: 20111116
  8. PACLITAXEL [Suspect]
     Indication: BREAST CANCER
     Route: 042
     Dates: start: 20111115, end: 20111121

REACTIONS (1)
  - HEPATIC FUNCTION ABNORMAL [None]
